FAERS Safety Report 6023285-7 (Version None)
Quarter: 2008Q4

REPORT INFORMATION
  Report Type: 
  Country: None (occurrence: None)
  Receive Date: 20081223
  Receipt Date: 20081218
  Transmission Date: 20090506
  Serious: Yes (Death, Hospitalization)
  Sender: FDA-Public Use
  Company Number: DSA_32917_2008

PATIENT
  Age: 88 Year
  Sex: Male

DRUGS (11)
  1. ENALAPRIL MALEATE [Suspect]
     Indication: MYOCARDIAL ISCHAEMIA
     Dosage: (10 MG QD ORAL)
     Route: 048
     Dates: end: 20081007
  2. SPIRONOLACTONE [Suspect]
     Indication: MYOCARDIAL ISCHAEMIA
     Dosage: (25 MG ORAL)
     Route: 048
     Dates: end: 20081007
  3. ATORVASTATIN CALCIUM [Suspect]
     Indication: MYOCARDIAL ISCHAEMIA
     Dosage: (40 MG ORAL)
     Route: 048
     Dates: end: 20081015
  4. OMEPRAZOLE [Suspect]
     Indication: DUODENITIS
     Dosage: (20 MG ORAL)
     Route: 048
     Dates: start: 20070701, end: 20081015
  5. OMEPRAZOLE [Suspect]
     Indication: GASTRITIS
     Dosage: (20 MG ORAL)
     Route: 048
     Dates: start: 20070701, end: 20081015
  6. SELOKENZOC [Concomitant]
  7. FUROSEMIDE [Concomitant]
  8. ALLOPURINOL [Concomitant]
  9. TROMBYL [Concomitant]
  10. IMDUR [Concomitant]
  11. TRIOBE /01079901/ [Concomitant]

REACTIONS (8)
  - ALANINE AMINOTRANSFERASE INCREASED [None]
  - ARTERIOSCLEROSIS [None]
  - ASPARTATE AMINOTRANSFERASE INCREASED [None]
  - BLOOD ALKALINE PHOSPHATASE INCREASED [None]
  - BLOOD BILIRUBIN INCREASED [None]
  - BLOOD CREATININE INCREASED [None]
  - SHOCK [None]
  - TRANSAMINASES INCREASED [None]
